FAERS Safety Report 25928934 (Version 1)
Quarter: 2025Q4

REPORT INFORMATION
  Report Type: Spontaneous
  Country: ET (occurrence: ET)
  Receive Date: 20251016
  Receipt Date: 20251016
  Transmission Date: 20260117
  Serious: Yes (Hospitalization, Other)
  Sender: NOVARTIS
  Company Number: ET-002147023-NVSC2025ET160175

PATIENT
  Sex: Male

DRUGS (1)
  1. GLIVEC [Suspect]
     Active Substance: IMATINIB MESYLATE
     Indication: Chronic myeloid leukaemia
     Dosage: 300 MG, (3 X 100MG)
     Route: 065

REACTIONS (4)
  - Hyperleukocytosis [Unknown]
  - Acute myeloid leukaemia [Unknown]
  - Blast crisis in myelogenous leukaemia [Unknown]
  - Bicytopenia [Unknown]
